FAERS Safety Report 16601271 (Version 1)
Quarter: 2019Q3

REPORT INFORMATION
  Report Type: Spontaneous
  Country: US (occurrence: US)
  Receive Date: 20190720
  Receipt Date: 20190720
  Transmission Date: 20191004
  Serious: No
  Sender: FDA-Public Use
  Company Number: US-GALDERMA-US19039809

PATIENT
  Age: 18 Year
  Sex: Female

DRUGS (9)
  1. TYRENOL [Concomitant]
  2. PROACTIV MD DEEP CLEANSING FACE WASH [Concomitant]
     Active Substance: COSMETICS
     Indication: ACNE
     Route: 061
     Dates: start: 20180322, end: 201804
  3. SOAP [Concomitant]
     Active Substance: SOAP
  4. PROACTIV MD DAILY OIL CONTROL SPF 30 [Suspect]
     Active Substance: AVOBENZONE\OCTISALATE\OCTOCRYLENE
     Indication: ACNE
     Route: 061
     Dates: start: 20180322, end: 201804
  5. WATER. [Concomitant]
     Active Substance: WATER
  6. PROACTIV MD ADAPALENE ACNE TREATMENT [Suspect]
     Active Substance: ADAPALENE
     Indication: ACNE
     Dosage: 0.1%
     Route: 061
     Dates: start: 20180322, end: 201804
  7. PROACTIV DEEP CLEANSING WASH [Concomitant]
     Active Substance: SALICYLIC ACID
     Indication: ACNE
     Route: 061
     Dates: start: 20180322, end: 201804
  8. PROACTIV SOLUTION BLACKHEAD DISSOLVING [Concomitant]
     Active Substance: SALICYLIC ACID
     Indication: ACNE
     Route: 061
     Dates: start: 20180322, end: 201804
  9. ASPIRIN. [Concomitant]
     Active Substance: ASPIRIN

REACTIONS (3)
  - Acne cystic [Not Recovered/Not Resolved]
  - Acne [Not Recovered/Not Resolved]
  - Seborrhoea [Not Recovered/Not Resolved]

NARRATIVE: CASE EVENT DATE: 201804
